FAERS Safety Report 24458260 (Version 1)
Quarter: 2024Q4

REPORT INFORMATION
  Report Type: Report from Study
  Country: IT (occurrence: IT)
  Receive Date: 20241018
  Receipt Date: 20241018
  Transmission Date: 20250114
  Serious: Yes (Death)
  Sender: ROCHE
  Company Number: IT-ROCHE-10000101941

PATIENT

DRUGS (1)
  1. GLOFITAMAB [Suspect]
     Active Substance: GLOFITAMAB
     Indication: Non-Hodgkin^s lymphoma refractory
     Route: 065

REACTIONS (4)
  - Infection [Fatal]
  - Cytopenia [Unknown]
  - Cytokine release syndrome [Unknown]
  - Hypogammaglobulinaemia [Unknown]
